FAERS Safety Report 17913043 (Version 6)
Quarter: 2022Q1

REPORT INFORMATION
  Report Type: Spontaneous
  Country: US (occurrence: US)
  Receive Date: 20200618
  Receipt Date: 20220128
  Transmission Date: 20220423
  Serious: Yes (Death, Hospitalization, Other)
  Sender: FDA-Public Use
  Company Number: US-GILEAD-2020-0473547

PATIENT
  Age: 64 Year
  Sex: Male
  Weight: 58.957 kg

DRUGS (76)
  1. TRUVADA [Suspect]
     Active Substance: EMTRICITABINE\TENOFOVIR DISOPROXIL FUMARATE
     Indication: HIV infection
     Dosage: UNK
     Route: 048
     Dates: start: 2004, end: 2013
  2. TRUVADA [Suspect]
     Active Substance: EMTRICITABINE\TENOFOVIR DISOPROXIL FUMARATE
     Dosage: UNK
     Route: 048
     Dates: start: 2004, end: 20140625
  3. TRUVADA [Suspect]
     Active Substance: EMTRICITABINE\TENOFOVIR DISOPROXIL FUMARATE
     Dosage: UNK
     Route: 048
     Dates: start: 20140614, end: 20140625
  4. STRIBILD [Suspect]
     Active Substance: COBICISTAT\ELVITEGRAVIR\EMTRICITABINE\TENOFOVIR DISOPROXIL FUMARATE
     Indication: HIV infection
     Dosage: UNK
     Route: 048
     Dates: start: 2012, end: 2012
  5. VIREAD [Suspect]
     Active Substance: TENOFOVIR DISOPROXIL FUMARATE
     Indication: HIV infection
     Dosage: UNK
     Route: 048
     Dates: start: 2004, end: 20140601
  6. SODIUM BICARBONATE [Concomitant]
     Active Substance: SODIUM BICARBONATE
  7. SULFASALAZINE [Concomitant]
     Active Substance: SULFASALAZINE
  8. HYDROXYCHLOROQUINE SULFATE [Concomitant]
     Active Substance: HYDROXYCHLOROQUINE SULFATE
  9. WELLBUTRIN XL [Concomitant]
     Active Substance: BUPROPION HYDROCHLORIDE
  10. MIRTAZAPINE [Concomitant]
     Active Substance: MIRTAZAPINE
  11. LISINOPRIL [Concomitant]
     Active Substance: LISINOPRIL
  12. CORTISONE [Concomitant]
     Active Substance: CORTISONE
  13. MEDROL [Concomitant]
     Active Substance: METHYLPREDNISOLONE
  14. ASPIRIN [Concomitant]
     Active Substance: ASPIRIN
  15. CRESTOR [Concomitant]
     Active Substance: ROSUVASTATIN CALCIUM
  16. ALENDRONATE [Concomitant]
     Active Substance: ALENDRONATE SODIUM
  17. AMOXICILLIN [Concomitant]
     Active Substance: AMOXICILLIN
  18. AZULFIDINE [Concomitant]
     Active Substance: SULFASALAZINE
  19. BACTRIM [Concomitant]
     Active Substance: SULFAMETHOXAZOLE\TRIMETHOPRIM
  20. CYCLOSPORINE [Concomitant]
     Active Substance: CYCLOSPORINE
  21. DEPAKOTE [Concomitant]
     Active Substance: DIVALPROEX SODIUM
  22. DEXAMETHASONE [Concomitant]
     Active Substance: DEXAMETHASONE
  23. TAMSULOSIN HYDROCHLORIDE [Concomitant]
     Active Substance: TAMSULOSIN HYDROCHLORIDE
  24. GANCICLOVIR [Concomitant]
     Active Substance: GANCICLOVIR
  25. HALOPERIDOL [Concomitant]
     Active Substance: HALOPERIDOL
  26. HEPARIN [Concomitant]
     Active Substance: HEPARIN SODIUM
  27. INDINAVIR [Concomitant]
     Active Substance: INDINAVIR
  28. LITHIUM [Concomitant]
     Active Substance: LITHIUM
  29. PANTOPRAZOLE [Concomitant]
     Active Substance: PANTOPRAZOLE
  30. PREDNISOLONE [Concomitant]
     Active Substance: PREDNISOLONE
  31. PREDNISONE [Concomitant]
     Active Substance: PREDNISONE
  32. VANCOMYCIN [Concomitant]
     Active Substance: VANCOMYCIN
  33. EPIVIR [Concomitant]
     Active Substance: LAMIVUDINE
  34. INTELENCE [Concomitant]
     Active Substance: ETRAVIRINE
  35. ISENTRESS [Concomitant]
     Active Substance: RALTEGRAVIR POTASSIUM
  36. NORVIR [Concomitant]
     Active Substance: RITONAVIR
  37. PREZISTA [Concomitant]
     Active Substance: DARUNAVIR ETHANOLATE
  38. ZIAGEN [Concomitant]
     Active Substance: ABACAVIR SULFATE
  39. CELEBREX [Concomitant]
     Active Substance: CELECOXIB
  40. LEVOFLOXACIN [Concomitant]
     Active Substance: LEVOFLOXACIN
  41. CEFTRIAXONE [Concomitant]
     Active Substance: CEFTRIAXONE
  42. ACETAMINOPHEN AND CODEINE [Concomitant]
     Active Substance: ACETAMINOPHEN\CODEINE PHOSPHATE
  43. ANDROGEL [Concomitant]
     Active Substance: TESTOSTERONE
  44. DIPHENOXYLATE HYDROCHLORIDE AND ATROPINE SULFATE [Concomitant]
     Active Substance: ATROPINE SULFATE\DIPHENOXYLATE HYDROCHLORIDE
  45. DRONABINOL [Concomitant]
     Active Substance: DRONABINOL
  46. CHLORMEZANONE [Concomitant]
     Active Substance: CHLORMEZANONE
  47. ADAPALENE [Concomitant]
     Active Substance: ADAPALENE
  48. ALBENZA [Concomitant]
     Active Substance: ALBENDAZOLE
  49. ATROPINE [Concomitant]
     Active Substance: ATROPINE
  50. AZITHROMYCIN [Concomitant]
     Active Substance: AZITHROMYCIN
  51. BENZONATATE [Concomitant]
     Active Substance: BENZONATATE
  52. BICALUTAMIDE [Concomitant]
     Active Substance: BICALUTAMIDE
  53. CABERGOLINE [Concomitant]
     Active Substance: CABERGOLINE
  54. BUPROPION HYDROCHLORIDE XL [Concomitant]
     Active Substance: BUPROPION HYDROCHLORIDE
  55. CHLORHEXIDINE [Concomitant]
     Active Substance: CHLORHEXIDINE
  56. CLINDAMYCIN [Concomitant]
     Active Substance: CLINDAMYCIN
  57. CIPROFLOXACIN HYDROCHLORIDE [Concomitant]
     Active Substance: CIPROFLOXACIN HYDROCHLORIDE
  58. CLOTRIMAZOLE [Concomitant]
     Active Substance: CLOTRIMAZOLE
  59. DUTASTERIDE [Concomitant]
     Active Substance: DUTASTERIDE
  60. ERYTHROMYCIN [Concomitant]
     Active Substance: ERYTHROMYCIN
  61. FLUCONAZOLE [Concomitant]
     Active Substance: FLUCONAZOLE
  62. GAVILYTE - C [Concomitant]
     Active Substance: POLYETHYLENE GLYCOL 3350\POTASSIUM CHLORIDE\SODIUM BICARBONATE\SODIUM CHLORIDE\SODIUM SULFATE
  63. KETOROLAC [Concomitant]
     Active Substance: KETOROLAC TROMETHAMINE
  64. LAMIVUDINE [Concomitant]
     Active Substance: LAMIVUDINE
  65. VITRON C [ASCORBIC ACID;FERROUS FUMARATE] [Concomitant]
  66. TEMAZEPAM [Concomitant]
     Active Substance: TEMAZEPAM
  67. VIAGRA [Concomitant]
     Active Substance: SILDENAFIL CITRATE
  68. ZESTRIL [Concomitant]
     Active Substance: LISINOPRIL
  69. RESTASIS [Concomitant]
     Active Substance: CYCLOSPORINE
  70. LEVOFLOXACIN [Concomitant]
     Active Substance: LEVOFLOXACIN
  71. HYDROCODONE BITARTRATE AND IBUPROFEN [Concomitant]
     Active Substance: HYDROCODONE BITARTRATE\IBUPROFEN
  72. PENICILLIN [Concomitant]
     Active Substance: PENICILLIN
  73. ACETAMINOPHEN AND CODEINE [Concomitant]
     Active Substance: ACETAMINOPHEN\CODEINE PHOSPHATE
  74. CANNABIS SATIVA SUBSP. INDICA TOP [Concomitant]
     Active Substance: CANNABIS SATIVA SUBSP. INDICA TOP
  75. TRIMIX (ALPROSTADIL\PAPAVERINE\PHENTOLAMINE) [Concomitant]
     Active Substance: ALPROSTADIL\PAPAVERINE\PHENTOLAMINE
  76. OXANDROLONE [Concomitant]
     Active Substance: OXANDROLONE

REACTIONS (16)
  - Acute kidney injury [Fatal]
  - Osteoporosis [Not Recovered/Not Resolved]
  - Multiple fractures [Unknown]
  - Chronic kidney disease [Not Recovered/Not Resolved]
  - Spinal fracture [Unknown]
  - Compression fracture [Recovered/Resolved]
  - Renal failure [Recovered/Resolved]
  - Acute kidney injury [Recovered/Resolved]
  - Tooth loss [Recovered/Resolved]
  - Osteopenia [Recovered/Resolved]
  - Emotional distress [Not Recovered/Not Resolved]
  - Bone density decreased [Unknown]
  - Pain [Not Recovered/Not Resolved]
  - Osteopenia [Recovered/Resolved]
  - Blood creatinine increased [Unknown]
  - General physical health deterioration [Recovered/Resolved]

NARRATIVE: CASE EVENT DATE: 20100101
